FAERS Safety Report 5287561-8 (Version None)
Quarter: 2007Q1

REPORT INFORMATION
  Report Type: 
  Country: None (occurrence: None)
  Receive Date: 20070126
  Receipt Date: 20061024
  Transmission Date: 20070707
  Serious: No
  Sender: FDA-Public Use
  Company Number: 2006CT000824

PATIENT
  Age: 58 Year
  Sex: Female
  Weight: 90.7194 kg

DRUGS (8)
  1. VENTAVIS [Suspect]
     Indication: PULMONARY HYPERTENSION
     Dosage: 5 UG;6TO9X/DAY;INH
     Route: 055
     Dates: start: 20060928
  2. DILTIAZEM [Concomitant]
  3. TRACLEER [Concomitant]
  4. SILDENAFIL CITRATE [Concomitant]
  5. SPIRONOLACTONE [Concomitant]
  6. VITAMIN CAP [Concomitant]
  7. DIGOXIN [Concomitant]
  8. OXYGEN [Concomitant]

REACTIONS (2)
  - HEADACHE [None]
  - ORAL PAIN [None]
